FAERS Safety Report 6300186-8 (Version None)
Quarter: 2009Q3

REPORT INFORMATION
  Report Type: 
  Country: None (occurrence: None)
  Receive Date: 20090806
  Receipt Date: 20090731
  Transmission Date: 20100115
  Serious: Yes (Other)
  Sender: FDA-Public Use
  Company Number: AU-AMGEN-QUU358143

PATIENT
  Sex: Male

DRUGS (5)
  1. ARANESP [Suspect]
     Indication: RENAL FAILURE CHRONIC
     Route: 058
     Dates: start: 20050501
  2. AZATHIOPRINE [Concomitant]
     Dates: start: 20090401
  3. SULFAMETHOXAZOLE [Concomitant]
     Dates: start: 20090302, end: 20090401
  4. SULFAMETHOXAZOLE AND TRIMETHOPRIM [Concomitant]
     Dates: start: 20090302, end: 20090401
  5. TACROLIMUS [Concomitant]
     Dates: start: 20090302

REACTIONS (1)
  - APLASIA PURE RED CELL [None]
